FAERS Safety Report 6071697-8 (Version None)
Quarter: 2009Q1

REPORT INFORMATION
  Report Type: 
  Country: None (occurrence: None)
  Receive Date: 20090205
  Receipt Date: 20090129
  Transmission Date: 20090719
  Serious: Yes (Other)
  Sender: FDA-Public Use
  Company Number: 2009SP002198

PATIENT
  Sex: 0

DRUGS (1)
  1. NASONEX [Suspect]
     Indication: SINUSITIS
     Dosage: NAS
     Route: 045

REACTIONS (1)
  - FUNGAL RHINITIS [None]
